FAERS Safety Report 25153690 (Version 1)
Quarter: 2025Q2

REPORT INFORMATION
  Report Type: Spontaneous
  Country: US (occurrence: US)
  Receive Date: 20250403
  Receipt Date: 20250403
  Transmission Date: 20250716
  Serious: No
  Sender: BRISTOL MYERS SQUIBB
  Company Number: US-BRISTOL-MYERS SQUIBB COMPANY-2025-049130

PATIENT
  Age: 77 Year
  Sex: Female

DRUGS (1)
  1. POMALYST [Suspect]
     Active Substance: POMALIDOMIDE
     Indication: Plasma cell myeloma
     Route: 048

REACTIONS (3)
  - Urinary tract infection [Recovered/Resolved]
  - Muscle spasms [Unknown]
  - Pain in extremity [Unknown]

NARRATIVE: CASE EVENT DATE: 20250301
